FAERS Safety Report 16004161 (Version 1)
Quarter: 2019Q1

REPORT INFORMATION
  Report Type: Spontaneous
  Country: SE (occurrence: SE)
  Receive Date: 20190226
  Receipt Date: 20190226
  Transmission Date: 20190418
  Serious: Yes (Other)
  Sender: FDA-Public Use
  Company Number: SE-TEVA-2019-SE-1015529

PATIENT
  Age: 60 Year
  Sex: Male

DRUGS (2)
  1. LINEZOLID. [Suspect]
     Active Substance: LINEZOLID
     Indication: DEVICE RELATED INFECTION
     Dosage: STYRKA ^600^ 1X2
     Route: 048
     Dates: start: 20170113, end: 20170315
  2. LINEZOLID. [Suspect]
     Active Substance: LINEZOLID
     Dosage: STYRKA ^300^ 1X2
     Route: 048
     Dates: start: 20170407, end: 20170409

REACTIONS (3)
  - Tooth discolouration [Unknown]
  - Polyneuropathy [Recovered/Resolved with Sequelae]
  - Nausea [Unknown]

NARRATIVE: CASE EVENT DATE: 2017
